FAERS Safety Report 5872749-5 (Version None)
Quarter: 2008Q3

REPORT INFORMATION
  Report Type: 
  Country: None (occurrence: None)
  Receive Date: 20080905
  Receipt Date: 20080825
  Transmission Date: 20090109
  Serious: Yes (Hospitalization, Disabling, Other)
  Sender: FDA-Public Use
  Company Number: AU-PFIZER INC-2008066955

PATIENT
  Age: 31 Year
  Sex: Female

DRUGS (8)
  1. CHANTIX [Suspect]
     Indication: SMOKING CESSATION THERAPY
     Route: 048
     Dates: start: 20080501, end: 20080626
  2. LEXAPRO [Suspect]
     Indication: DEPRESSION
     Dosage: DAILY DOSE:20MG
     Route: 048
     Dates: start: 20061101, end: 20080626
  3. MAXOLON [Concomitant]
     Route: 048
  4. MIRENA [Concomitant]
  5. SYMBICORT [Concomitant]
     Route: 055
  6. VENTOLIN [Concomitant]
  7. MARIJUANA [Concomitant]
  8. ALCOHOL [Concomitant]

REACTIONS (2)
  - BIPOLAR DISORDER [None]
  - HYPOMANIA [None]
